FAERS Safety Report 9789325 (Version 1)
Quarter: 2013Q4

REPORT INFORMATION
  Report Type: Spontaneous
  Country: IT (occurrence: IT)
  Receive Date: 20131231
  Receipt Date: 20131231
  Transmission Date: 20140711
  Serious: Yes (Hospitalization)
  Sender: FDA-Public Use
  Company Number: IT-ACTAVIS-2013-23748

PATIENT
  Age: 67 Year
  Sex: Male

DRUGS (1)
  1. PARACETAMOL (UNKNOWN) [Suspect]
     Indication: INTENTIONAL SELF-INJURY
     Dosage: 12 DF, TOTAL
     Route: 065
     Dates: start: 20130819, end: 20130819

REACTIONS (3)
  - Drug abuse [Unknown]
  - Sopor [Unknown]
  - Toxicity to various agents [Unknown]
